FAERS Safety Report 8935816 (Version 1)
Quarter: 2012Q4

REPORT INFORMATION
  Report Type: 
  Country: FR (occurrence: FR)
  Receive Date: 20121130
  Receipt Date: 20121130
  Transmission Date: 20130627
  Serious: Yes (Hospitalization)
  Sender: FDA-Public Use
  Company Number: FR-BRISTOL-MYERS SQUIBB COMPANY-17152265

PATIENT
  Age: 51 Year
  Sex: Male

DRUGS (9)
  1. ABILIFY [Suspect]
     Route: 048
     Dates: start: 20120627
  2. LOXAPAC [Suspect]
     Route: 048
     Dates: start: 20111219
  3. RISPERDAL [Suspect]
     Route: 048
     Dates: start: 20111121
  4. PARKINANE [Suspect]
     Indication: PARKINSON^S DISEASE
     Route: 048
     Dates: start: 20111123
  5. CLOPIXOL [Suspect]
     Route: 048
     Dates: start: 20111128
  6. SEROPLEX [Suspect]
     Route: 048
  7. TRIVASTAL [Concomitant]
  8. VALIUM [Concomitant]
  9. LEVOTHYROX [Concomitant]

REACTIONS (1)
  - Angle closure glaucoma [Not Recovered/Not Resolved]
